FAERS Safety Report 6105518-1 (Version None)
Quarter: 2009Q1

REPORT INFORMATION
  Report Type: 
  Country: None (occurrence: None)
  Receive Date: 20090306
  Receipt Date: 20090302
  Transmission Date: 20090719
  Serious: Yes (Congenital Anomaly)
  Sender: FDA-Public Use
  Company Number: A0771892B

PATIENT
  Age: 0 Year
  Sex: Male
  Weight: 3.3 kg

DRUGS (2)
  1. LAMOTRIGINE [Suspect]
     Indication: EPILEPSY
     Dosage: 200MG PER DAY
     Dates: start: 20070605
  2. DEPAKOTE ER [Concomitant]
     Dosage: 2000MG PER DAY

REACTIONS (2)
  - CONGENITAL TRACHEOMALACIA [None]
  - DRUG EXPOSURE DURING PREGNANCY [None]
